FAERS Safety Report 13152984 (Version 2)
Quarter: 2018Q2

REPORT INFORMATION
  Report Type: Spontaneous
  Country: US (occurrence: US)
  Receive Date: 20170126
  Receipt Date: 20180417
  Transmission Date: 20180711
  Serious: No
  Sender: FDA-Public Use
  Company Number: US-BRISTOL-MYERS SQUIBB COMPANY-BMS-2017-003776

PATIENT
  Sex: Female

DRUGS (2)
  1. TRIAMCINOLONE ACETONIDE. [Suspect]
     Active Substance: TRIAMCINOLONE ACETONIDE
     Indication: DERMATITIS CONTACT
     Dosage: UNK
     Route: 061
  2. BUDESONIDE. [Suspect]
     Active Substance: BUDESONIDE
     Indication: DERMATITIS CONTACT
     Dosage: UNK
     Route: 065

REACTIONS (3)
  - Drug ineffective [Unknown]
  - Skin test positive [Unknown]
  - Dermatitis contact [Not Recovered/Not Resolved]
